FAERS Safety Report 4700814-4 (Version None)
Quarter: 2005Q2

REPORT INFORMATION
  Report Type: 
  Country: None (occurrence: None)
  Receive Date: 20050624
  Receipt Date: 20041118
  Transmission Date: 20051028
  Serious: Yes (Life-Threatening, Hospitalization)
  Sender: FDA-Public Use
  Company Number: 386578

PATIENT
  Age: 79 Year
  Sex: Male
  Weight: 57.1 kg

DRUGS (8)
  1. XELODA [Suspect]
     Indication: COLORECTAL CANCER METASTATIC
     Dosage: 1065 MG 2 PER DAY
     Dates: start: 20040805
  2. AVASTIN [Suspect]
     Indication: COLORECTAL CANCER METASTATIC
     Dosage: 420 MG 1 PER 2 WEEK INTRAVENOUS
     Route: 042
     Dates: start: 20040805, end: 20040826
  3. OXALIPLATIN (OXALIPLATIN) [Suspect]
     Indication: COLORECTAL CANCER METASTATIC
     Dosage: 128 MG INTRAVENOUS
     Route: 042
     Dates: start: 20040805, end: 20040826
  4. FLUOROURACIL [Suspect]
     Indication: COLORECTAL CANCER METASTATIC
     Dosage: 400 MG INTRAVENOUS
     Route: 042
     Dates: start: 20040805, end: 20040826
  5. PROCRIT (EPOETIN ALFA) [Concomitant]
  6. IRON NOS (IRON NOS) [Concomitant]
  7. REGLAN [Concomitant]
  8. COUMADIN [Concomitant]

REACTIONS (1)
  - GASTROINTESTINAL HAEMORRHAGE [None]
